FAERS Safety Report 8263387-8 (Version None)
Quarter: 2012Q2

REPORT INFORMATION
  Report Type: 
  Country: None (occurrence: None)
  Receive Date: 20120405
  Receipt Date: 20120328
  Transmission Date: 20120825
  Serious: Yes (Hospitalization)
  Sender: FDA-Public Use
  Company Number: DE-MILLENNIUM PHARMACEUTICALS, INC.-2012-01935

PATIENT

DRUGS (1)
  1. VELCADE [Suspect]
     Indication: MULTIPLE MYELOMA
     Dosage: 1.3 MG/M2, UNK
     Route: 065
     Dates: start: 20120124, end: 20120305

REACTIONS (4)
  - CLOSTRIDIUM DIFFICILE COLITIS [None]
  - ASTHENIA [None]
  - PYREXIA [None]
  - DEHYDRATION [None]
